FAERS Safety Report 8409534-6 (Version None)
Quarter: 2012Q2

REPORT INFORMATION
  Report Type: 
  Country: None (occurrence: None)
  Receive Date: 20120529
  Receipt Date: 20060123
  Transmission Date: 20120825
  Serious: Yes (Other)
  Sender: FDA-Public Use
  Company Number: JP-2011-12271

PATIENT
  Age: 70 Year
  Sex: Male

DRUGS (9)
  1. PENTCILLIN (PEPERACILLIN SODIUM) [Concomitant]
  2. SELBEX (TEPRENONE) [Concomitant]
  3. ZOFRAN [Concomitant]
  4. XANBON (OZAGREL SODIUM) [Concomitant]
  5. IMIPENEM AND CILASTATIN [Concomitant]
  6. SULPERAZON (CEFOPERAZONE SODIUM, SUBACTAM SODIUM) [Concomitant]
  7. CEFOTIAM HYDROCHLORIDE [Concomitant]
  8. BIOFERMIN R (STREPTOCOCCUS FAECALIS) [Concomitant]
  9. PLETAL [Suspect]
     Indication: LACUNAR INFARCTION
     Dosage: 100 MG, BID, ORAL
     Route: 048
     Dates: start: 20040114

REACTIONS (2)
  - WHITE BLOOD CELL COUNT DECREASED [None]
  - GASTRIC CANCER [None]
